FAERS Safety Report 21752646 (Version 3)
Quarter: 2023Q1

REPORT INFORMATION
  Report Type: Spontaneous
  Country: US (occurrence: US)
  Receive Date: 20221220
  Receipt Date: 20230210
  Transmission Date: 20230418
  Serious: No
  Sender: FDA-Public Use
  Company Number: US-BRISTOL-MYERS SQUIBB COMPANY-2022-155287

PATIENT
  Age: 52 Year
  Sex: Male

DRUGS (3)
  1. SPRYCEL [Suspect]
     Active Substance: DASATINIB
     Indication: Chronic myeloid leukaemia
     Route: 048
     Dates: start: 20221126
  2. SPRYCEL [Suspect]
     Active Substance: DASATINIB
     Route: 048
     Dates: start: 20221126
  3. SPRYCEL [Suspect]
     Active Substance: DASATINIB
     Route: 048
     Dates: start: 202212

REACTIONS (7)
  - Fatigue [Unknown]
  - White blood cell count decreased [Unknown]
  - Impaired healing [Unknown]
  - Feeling abnormal [Unknown]
  - Skin laceration [Unknown]
  - Pain in extremity [Unknown]
  - Somnolence [Unknown]
